FAERS Safety Report 8807072 (Version 1)
Quarter: 2012Q4

REPORT INFORMATION
  Report Type: 
  Country: US (occurrence: US)
  Receive Date: 20120925
  Receipt Date: 20120925
  Transmission Date: 20130627
  Serious: Yes (Death)
  Sender: FDA-Public Use
  Company Number: US-ROCHE-1127634

PATIENT
  Sex: Female

DRUGS (2)
  1. AVASTIN [Suspect]
     Indication: RENAL CANCER
     Route: 065
     Dates: start: 20050412, end: 20050923
  2. AVASTIN [Suspect]
     Indication: SMALL INTESTINE CARCINOMA
     Route: 065
     Dates: start: 20060131

REACTIONS (2)
  - Death [Fatal]
  - Disease progression [Unknown]
